FAERS Safety Report 4712431-0 (Version None)
Quarter: 2005Q3

REPORT INFORMATION
  Report Type: 
  Country: None (occurrence: None)
  Receive Date: 20050711
  Receipt Date: 20050630
  Transmission Date: 20060218
  Serious: Yes (Disabling)
  Sender: FDA-Public Use
  Company Number: 05H-163-0300766-00

PATIENT
  Age: 55 Year
  Sex: Male
  Weight: 67.586 kg

DRUGS (5)
  1. VANCOMYCIN HYDROCHLORIDE [Suspect]
     Indication: CATHETER RELATED INFECTION
     Dosage: INTRAVENOUS
     Route: 042
     Dates: start: 20050101, end: 20050101
  2. CLONIDINE [Concomitant]
  3. CARDZILOL [Concomitant]
  4. RAMIFIEL [Concomitant]
  5. GLYPERIDE [Concomitant]

REACTIONS (5)
  - BLINDNESS [None]
  - ERYTHEMA [None]
  - HEADACHE [None]
  - HYPERTENSION [None]
  - SKIN BURNING SENSATION [None]
